FAERS Safety Report 13946396 (Version 1)
Quarter: 2017Q3

REPORT INFORMATION
  Report Type: Report from Study
  Country: CO (occurrence: CO)
  Receive Date: 20170907
  Receipt Date: 20170907
  Transmission Date: 20171128
  Serious: Yes (Other)
  Sender: FDA-Public Use
  Company Number: CO-ACTELION-A-US2017-159177

PATIENT
  Sex: Female

DRUGS (2)
  1. VENTAVIS [Suspect]
     Active Substance: ILOPROST
     Dosage: 5 MCG, 4-5 PER DAY
     Route: 055
     Dates: start: 20100727
  2. VENTAVIS [Suspect]
     Active Substance: ILOPROST
     Indication: PULMONARY ARTERIAL HYPERTENSION
     Dosage: 5 MCG, 6ID
     Route: 055
     Dates: start: 20100727

REACTIONS (4)
  - Liver disorder [Not Recovered/Not Resolved]
  - Product taste abnormal [Unknown]
  - Yellow skin [Not Recovered/Not Resolved]
  - Product use issue [Unknown]
